FAERS Safety Report 9712117 (Version 1)
Quarter: 2013Q4

REPORT INFORMATION
  Report Type: Spontaneous
  Country: US (occurrence: US)
  Receive Date: 20131126
  Receipt Date: 20131126
  Transmission Date: 20140711
  Serious: Yes (Hospitalization)
  Sender: FDA-Public Use
  Company Number: US-B.I. PHARMACEUTICALS,INC./RIDGEFIELD-2013-BI-38844YA

PATIENT
  Age: 70 Year
  Sex: Female

DRUGS (8)
  1. TAMSULOSIN CAPSULES [Suspect]
     Indication: PRODUCT USED FOR UNKNOWN INDICATION
     Route: 065
     Dates: end: 20131025
  2. MYRBETRIQ [Suspect]
     Indication: PRODUCT USED FOR UNKNOWN INDICATION
     Dosage: 25 MG
     Route: 048
     Dates: start: 20131023, end: 20131107
  3. DIGOXIN (DIGOXIN) [Concomitant]
  4. ATORVASTATIN (ATORVASTATIN) [Concomitant]
  5. OMEPRAZOLE (OMEPRAZOLE) [Concomitant]
  6. ASPIRIN (ACETYLSALICYLIC ACID) [Concomitant]
  7. LEVOTHYROXINE (LEVOTHYROXINE) [Concomitant]
  8. ENALAPRIL [Concomitant]

REACTIONS (5)
  - Syncope [Unknown]
  - Loss of consciousness [Unknown]
  - Vertigo positional [Unknown]
  - Gait disturbance [Unknown]
  - Headache [Unknown]
